FAERS Safety Report 10458718 (Version 3)
Quarter: 2014Q4

REPORT INFORMATION
  Report Type: Spontaneous
  Country: BR (occurrence: BR)
  Receive Date: 20140917
  Receipt Date: 20141103
  Transmission Date: 20150528
  Serious: Yes (Death, Hospitalization, Other)
  Sender: FDA-Public Use
  Company Number: BR-JNJFOC-20140908671

PATIENT
  Age: 86 Year
  Sex: Female
  Weight: 59.86 kg

DRUGS (1)
  1. XARELTO [Suspect]
     Active Substance: RIVAROXABAN
     Indication: CEREBROVASCULAR ACCIDENT PROPHYLAXIS
     Route: 048
     Dates: start: 20131112, end: 20140107

REACTIONS (4)
  - Peripheral arterial occlusive disease [Fatal]
  - Cardiac failure [Fatal]
  - Aortic stenosis [Fatal]
  - Pulmonary sepsis [Fatal]

NARRATIVE: CASE EVENT DATE: 201401
